FAERS Safety Report 16972231 (Version 3)
Quarter: 2019Q4

REPORT INFORMATION
  Report Type: Spontaneous
  Country: FI (occurrence: FI)
  Receive Date: 20191029
  Receipt Date: 20191113
  Transmission Date: 20200122
  Serious: Yes (Other)
  Sender: FDA-Public Use
  Company Number: FI-AMGEN-FINSP2019178831

PATIENT
  Sex: Female

DRUGS (2)
  1. AIMOVIG [Suspect]
     Active Substance: ERENUMAB-AOOE
     Indication: MIGRAINE
     Dosage: 70 MILLIGRAM
     Route: 065
     Dates: start: 20190904, end: 201910
  2. AIMOVIG [Suspect]
     Active Substance: ERENUMAB-AOOE
     Dosage: 140 MILLIGRAM
     Route: 065
     Dates: start: 201910

REACTIONS (7)
  - Malaise [Unknown]
  - Hypoxia [Unknown]
  - Fatigue [Unknown]
  - Atrial fibrillation [Unknown]
  - Pneumonia [Unknown]
  - Arrhythmia [Unknown]
  - Conduction disorder [Unknown]

NARRATIVE: CASE EVENT DATE: 201910
